FAERS Safety Report 6147023-2 (Version None)
Quarter: 2009Q2

REPORT INFORMATION
  Report Type: 
  Country: None (occurrence: None)
  Receive Date: 20090402
  Receipt Date: 20090320
  Transmission Date: 20091009
  Serious: Yes (Other)
  Sender: FDA-Public Use
  Company Number: ENTC2009-0095

PATIENT
  Age: 61 Year
  Sex: Male

DRUGS (2)
  1. STALEVO 100 [Suspect]
     Indication: PARKINSON'S DISEASE
     Dosage: 50 MG, 1 TAB DAILY FOR 5 DAYS ; 50 MG, 2 TABS EVERY DAY ; 50 MG, 4 TAB/DAY
     Dates: start: 20090309, end: 20090311
  2. STALEVO 100 [Suspect]
     Indication: PARKINSON'S DISEASE
     Dosage: 50 MG, 1 TAB DAILY FOR 5 DAYS ; 50 MG, 2 TABS EVERY DAY ; 50 MG, 4 TAB/DAY
     Dates: start: 20090219

REACTIONS (2)
  - HALLUCINATION [None]
  - SPEECH DISORDER [None]
